FAERS Safety Report 8278456-6 (Version None)
Quarter: 2012Q2

REPORT INFORMATION
  Report Type: 
  Country: None (occurrence: None)
  Receive Date: 20120412
  Receipt Date: 20111211
  Transmission Date: 20120825
  Serious: No
  Sender: FDA-Public Use
  Company Number: US-ASTRAZENECA-2008UW02629

PATIENT
  Age: 55 Year
  Sex: Female
  Weight: 70.8 kg

DRUGS (3)
  1. NEXIUM [Suspect]
     Indication: GASTROOESOPHAGEAL REFLUX DISEASE
     Route: 048
     Dates: start: 20111209
  2. ANTIHYPERTENSIVE DRUG [Concomitant]
     Indication: HYPERTENSION
  3. NEXIUM [Suspect]
     Indication: DYSPEPSIA
     Route: 048
     Dates: start: 20111209

REACTIONS (3)
  - NASOPHARYNGITIS [None]
  - COUGH [None]
  - NAUSEA [None]
